FAERS Safety Report 4823400-4 (Version None)
Quarter: 2005Q4

REPORT INFORMATION
  Report Type: 
  Country: None (occurrence: None)
  Receive Date: 20051109
  Receipt Date: 20050701
  Transmission Date: 20060501
  Serious: Yes (Death, Life-Threatening, Hospitalization, Other)
  Sender: FDA-Public Use
  Company Number: DE-ABBOTT-05P-062-0304920-00

PATIENT
  Sex: Female
  Weight: 80 kg

DRUGS (3)
  1. HUMIRA [Suspect]
     Indication: RHEUMATOID ARTHRITIS
     Route: 058
     Dates: start: 20050203, end: 20050407
  2. CORTICOIDS [Concomitant]
     Indication: RHEUMATOID ARTHRITIS
     Route: 048
     Dates: end: 20050407
  3. NSAR, NON-SELECTIVE [Concomitant]
     Indication: RHEUMATOID ARTHRITIS
     Route: 048
     Dates: end: 20050407

REACTIONS (18)
  - ANURIA [None]
  - DISSEMINATED INTRAVASCULAR COAGULATION [None]
  - ESCHERICHIA BACTERAEMIA [None]
  - GENERALISED OEDEMA [None]
  - HYPERTENSION [None]
  - LABORATORY TEST ABNORMAL [None]
  - LACTIC ACIDOSIS [None]
  - MULTI-ORGAN FAILURE [None]
  - PERICARDIAL EFFUSION [None]
  - PLEURAL EFFUSION [None]
  - PNEUMONIA [None]
  - PURULENT PERICARDITIS [None]
  - PYOTHORAX [None]
  - RENAL FUNCTION TEST ABNORMAL [None]
  - SEPSIS [None]
  - TACHYARRHYTHMIA [None]
  - TRANSAMINASES INCREASED [None]
  - URINARY TRACT INFECTION [None]
